FAERS Safety Report 10623265 (Version 3)
Quarter: 2015Q1

REPORT INFORMATION
  Report Type: Spontaneous
  Country: FR (occurrence: FR)
  Receive Date: 20141203
  Receipt Date: 20150303
  Transmission Date: 20150720
  Serious: Yes (Hospitalization, Other)
  Sender: FDA-Public Use
  Company Number: FR-GLAXOSMITHKLINE-FR2014GSK028022

PATIENT
  Age: 68 Year
  Sex: Female

DRUGS (25)
  1. EUPANTOL [Suspect]
     Active Substance: PANTOPRAZOLE SODIUM
     Indication: PROPHYLAXIS
     Dosage: UNK
     Route: 042
     Dates: start: 20141013, end: 20141016
  2. LASILIX [Concomitant]
     Active Substance: FUROSEMIDE
  3. ASPEGIC [Suspect]
     Active Substance: ASPIRIN DL-LYSINE
     Indication: MYOCARDIAL ISCHAEMIA
     Dosage: UNK
     Route: 042
     Dates: start: 20141014, end: 20141017
  4. PLAVIX [Concomitant]
     Active Substance: CLOPIDOGREL BISULFATE
  5. BISOCE GE [Concomitant]
  6. LOVENOX [Concomitant]
     Active Substance: ENOXAPARIN SODIUM
  7. TRIFLUCAN [Suspect]
     Active Substance: FLUCONAZOLE
     Indication: INFLAMMATION
     Dosage: 50 MG, 1D
     Route: 048
     Dates: start: 20141025, end: 20141029
  8. ROCEPHINE [Suspect]
     Active Substance: CEFTRIAXONE SODIUM
     Dosage: UNK
     Route: 058
     Dates: start: 20141024
  9. EPINITRIL [Suspect]
     Active Substance: NITROGLYCERIN
     Indication: PROPHYLAXIS
     Dosage: 5 MG, QD
     Route: 062
     Dates: start: 20141015, end: 20141020
  10. CONTRAMAL [Suspect]
     Active Substance: TRAMADOL HYDROCHLORIDE
     Indication: PAIN
     Dosage: 30 MG, QD
     Route: 048
     Dates: start: 20141025, end: 20141026
  11. DOLIPRANE [Concomitant]
     Active Substance: ACETAMINOPHEN
  12. RISORDAN [Suspect]
     Active Substance: ISOSORBIDE DINITRATE
     Indication: ANGINA UNSTABLE
     Dosage: UNK
     Route: 042
     Dates: end: 20141027
  13. ATROVENT [Suspect]
     Active Substance: IPRATROPIUM BROMIDE
     Indication: DYSPNOEA
     Dosage: 0.5 MG, TID
     Route: 055
     Dates: start: 20141020, end: 20141020
  14. INEXIUM [Concomitant]
     Active Substance: ESOMEPRAZOLE
  15. ATIVAN [Concomitant]
     Active Substance: LORAZEPAM
  16. CALCIPARINE [Suspect]
     Active Substance: HEPARIN CALCIUM
     Indication: THROMBOSIS PROPHYLAXIS
     Dosage: UNK
     Route: 058
     Dates: start: 20141013, end: 20141018
  17. NORMACOL [Suspect]
     Active Substance: KARAYA GUM
     Dosage: UNK
     Dates: start: 20141018
  18. VENTOLINE [Suspect]
     Active Substance: ALBUTEROL
     Indication: DYSPNOEA
     Dosage: 5 MG, TID
     Route: 055
     Dates: start: 20141020, end: 20141020
  19. ROCEPHINE [Suspect]
     Active Substance: CEFTRIAXONE SODIUM
     Indication: URINARY TRACT INFECTION
     Dosage: UNK
     Route: 058
     Dates: start: 20141013, end: 20141020
  20. MORPHINE CHLORHYDRATE [Suspect]
     Active Substance: MORPHINE HYDROCHLORIDE
     Indication: PAIN
     Dosage: 10 MG, PRN
     Route: 042
     Dates: start: 20141013, end: 20141016
  21. NORMACOL [Suspect]
     Active Substance: KARAYA GUM
     Indication: CONSTIPATION
     Dosage: 1 UNK, PRN
     Route: 054
     Dates: start: 20141014
  22. HYPNOVEL [Suspect]
     Active Substance: MIDAZOLAM\MIDAZOLAM HYDROCHLORIDE
     Indication: AGITATION
     Dosage: 5 MG, PRN
     Route: 058
     Dates: start: 20141014, end: 20141023
  23. FLAGYL [Concomitant]
     Active Substance: METRONIDAZOLE\METRONIDAZOLE HYDROCHLORIDE
  24. LOXAPAC [Concomitant]
     Active Substance: LOXAPINE SUCCINATE
  25. KARDEGIC [Concomitant]
     Active Substance: ASPIRIN LYSINE

REACTIONS (1)
  - Neutropenia [Recovered/Resolved]

NARRATIVE: CASE EVENT DATE: 20141027
